FAERS Safety Report 6398308-6 (Version None)
Quarter: 2009Q4

REPORT INFORMATION
  Report Type: 
  Country: None (occurrence: None)
  Receive Date: 20091013
  Receipt Date: 20091008
  Transmission Date: 20100525
  Serious: Yes (Other)
  Sender: FDA-Public Use
  Company Number: CH-WYE-G04337009

PATIENT
  Age: 50 Year
  Sex: Female

DRUGS (1)
  1. EFFEXOR [Suspect]
     Indication: DEPRESSION
     Dates: start: 20090829, end: 20090831

REACTIONS (2)
  - FLUID RETENTION [None]
  - RESPIRATORY DISORDER [None]
